FAERS Safety Report 7690531-3 (Version None)
Quarter: 2011Q3

REPORT INFORMATION
  Report Type: 
  Country: None (occurrence: None)
  Receive Date: 20110818
  Receipt Date: 20110429
  Transmission Date: 20111222
  Serious: No
  Sender: FDA-Public Use
  Company Number: US-BAYER-2011-038258

PATIENT
  Age: 42 Year
  Sex: Female
  Weight: 103.86 kg

DRUGS (1)
  1. MIRENA [Suspect]
     Dosage: UNK
     Dates: end: 20110407

REACTIONS (1)
  - MENSTRUATION IRREGULAR [None]
